FAERS Safety Report 6296374-X (Version None)
Quarter: 2009Q3

REPORT INFORMATION
  Report Type: 
  Country: None (occurrence: None)
  Receive Date: 20090804
  Receipt Date: 20090730
  Transmission Date: 20100115
  Serious: Yes (Life-Threatening, Hospitalization)
  Sender: FDA-Public Use
  Company Number: FR-ABBOTT-09P-056-0588293-00

PATIENT
  Sex: Female

DRUGS (6)
  1. NUCTALON 2 MG [Suspect]
     Indication: DRUG TOXICITY
     Route: 048
     Dates: start: 20090720, end: 20090720
  2. LEVOTHYROX [Concomitant]
     Indication: THYROID DISORDER
     Route: 048
  3. MICROPAKINE [Concomitant]
     Indication: EPILEPSY
     Route: 048
  4. EFFEXOR [Concomitant]
     Indication: DEPRESSION
     Route: 048
  5. CLIMASTON [Concomitant]
     Indication: DRUG USE FOR UNKNOWN INDICATION
     Route: 048
  6. ISOPTIN [Concomitant]
     Indication: NODAL ARRHYTHMIA
     Route: 048

REACTIONS (1)
  - COMA [None]
